FAERS Safety Report 8912468 (Version 1)
Quarter: 2012Q4

REPORT INFORMATION
  Report Type: 
  Country: CH (occurrence: CH)
  Receive Date: 20121116
  Receipt Date: 20121116
  Transmission Date: 20130627
  Serious: Yes (Hospitalization)
  Sender: FDA-Public Use
  Company Number: CH-BAYER-2012-119610

PATIENT
  Age: 80 Year
  Sex: Male

DRUGS (8)
  1. ASPIRIN CARDIO [Suspect]
     Dosage: 100 mg, QD
     Route: 048
     Dates: end: 20121011
  2. SINTROM MITIS [Suspect]
     Indication: AORTIC VALVE REPLACEMENT
     Dosage: 1 mg, QD
     Route: 048
     Dates: end: 20121011
  3. ARIXTRA [Suspect]
     Dosage: 5 mg, QD
     Route: 058
     Dates: end: 20121011
  4. LUMINAL [Concomitant]
     Dosage: 100 mg, QD
     Route: 048
  5. CITALOPRAM [Concomitant]
     Dosage: 20 mg, QD
  6. SIMVASTATIN [Concomitant]
     Dosage: 20 mg, QD
     Route: 048
  7. AERIUS [Concomitant]
     Dosage: 5 mg, QD
     Route: 048
  8. SEROQUEL [Concomitant]
     Dosage: 25 mg, BID
     Route: 048

REACTIONS (4)
  - Muscle haemorrhage [Recovering/Resolving]
  - Anaemia [Recovering/Resolving]
  - Ileus paralytic [Recovering/Resolving]
  - Renal failure acute [Recovering/Resolving]
